FAERS Safety Report 13817414 (Version 1)
Quarter: 2017Q3

REPORT INFORMATION
  Report Type: Spontaneous
  Country: JP (occurrence: JP)
  Receive Date: 20170731
  Receipt Date: 20170731
  Transmission Date: 20171127
  Serious: Yes (Other)
  Sender: FDA-Public Use
  Company Number: PHHY2017JP109031

PATIENT
  Age: 69 Year
  Sex: Male

DRUGS (6)
  1. OXALIPLATIN. [Suspect]
     Active Substance: OXALIPLATIN
     Dosage: 1200 MG/M2, UNK, DAY 1 AND DAY 2
     Route: 041
  2. CALCIUM FOLINATE [Suspect]
     Active Substance: LEUCOVORIN CALCIUM
     Dosage: 1200 MG/M2, UNK, DAY 1 AND DAY 2
     Route: 041
  3. 5-FLUOROURACIL [Suspect]
     Active Substance: FLUOROURACIL
     Indication: GASTRIC ULCER
     Dosage: 400 MG/M2, UNK, DAY 1
     Route: 040
  4. 5-FLUOROURACIL [Suspect]
     Active Substance: FLUOROURACIL
     Dosage: 1200 MG/M2, UNK, DAY1 AND DAY 2
     Route: 041
  5. OXALIPLATIN. [Suspect]
     Active Substance: OXALIPLATIN
     Indication: GASTRIC CANCER
     Dosage: 400 MG/M2, UNK, DAY 1
     Route: 040
  6. CALCIUM FOLINATE [Suspect]
     Active Substance: LEUCOVORIN CALCIUM
     Indication: GASTRIC ULCER
     Dosage: 400 MG/M2, UNK, DAY 1
     Route: 065

REACTIONS (1)
  - Encephalopathy [Recovered/Resolved]
